FAERS Safety Report 20891131 (Version 1)
Quarter: 2022Q2

REPORT INFORMATION
  Report Type: Report from Study
  Country: CA (occurrence: CA)
  Receive Date: 20220530
  Receipt Date: 20220530
  Transmission Date: 20220721
  Serious: Yes (Other)
  Sender: FDA-Public Use
  Company Number: CA-BRISTOL-MYERS SQUIBB COMPANY-2022-020041

PATIENT
  Age: 77 Year
  Sex: Female

DRUGS (1)
  1. REBLOZYL [Suspect]
     Active Substance: LUSPATERCEPT-AAMT
     Indication: Myelodysplastic syndrome
     Dosage: Q 3 WEEKS?CPTHO50: 31-JUL-2023
     Route: 058
     Dates: start: 20220126

REACTIONS (4)
  - Blood pressure systolic increased [Recovering/Resolving]
  - Pneumonia [Recovered/Resolved]
  - Oedema [Unknown]
  - Joint swelling [Recovering/Resolving]

NARRATIVE: CASE EVENT DATE: 20220101
